FAERS Safety Report 8005110-8 (Version None)
Quarter: 2011Q4

REPORT INFORMATION
  Report Type: 
  Country: None (occurrence: None)
  Receive Date: 20111223
  Receipt Date: 20111215
  Transmission Date: 20120403
  Serious: Yes (Other)
  Sender: FDA-Public Use
  Company Number: PHHY2011PT109331

PATIENT
  Sex: Female

DRUGS (3)
  1. VINORELBINE [Concomitant]
  2. CAPECITABINE [Concomitant]
  3. ZOMETA [Suspect]
     Indication: METASTASES TO BONE
     Dosage: 4 MG, MONTHLY
     Dates: start: 20040101

REACTIONS (1)
  - OSTEONECROSIS OF JAW [None]
